FAERS Safety Report 17836875 (Version 2)
Quarter: 2020Q3

REPORT INFORMATION
  Report Type: Spontaneous
  Country: US (occurrence: US)
  Receive Date: 20200528
  Receipt Date: 20200710
  Transmission Date: 20201103
  Serious: Yes (Other)
  Sender: FDA-Public Use
  Company Number: US-LEXICON PHARMACEUTICALS, INC-20-1606-00409

PATIENT
  Age: 64 Year
  Sex: Female

DRUGS (17)
  1. XERMELO [Suspect]
     Active Substance: TELOTRISTAT ETHYL
     Indication: CARCINOID TUMOUR OF THE SMALL BOWEL
  2. TURMERIC [Concomitant]
     Active Substance: HERBALS\TURMERIC
  3. ASPIRIN. [Concomitant]
     Active Substance: ASPIRIN
  4. MULTIVITAMIN [Concomitant]
     Active Substance: VITAMINS
  5. LORAZEPAM. [Concomitant]
     Active Substance: LORAZEPAM
  6. PROBIOTIC [Concomitant]
     Active Substance: PROBIOTICS NOS
  7. XERMELO [Suspect]
     Active Substance: TELOTRISTAT ETHYL
     Indication: CARCINOID SYNDROME
     Dates: start: 20170823
  8. SANDOSTATIN LAR DEPOT [Concomitant]
     Active Substance: OCTREOTIDE ACETATE
  9. IBUPROFEN. [Concomitant]
     Active Substance: IBUPROFEN
  10. LASIX [Concomitant]
     Active Substance: FUROSEMIDE
  11. ALDACTONE [Concomitant]
     Active Substance: SPIRONOLACTONE
  12. METOLAZONE. [Concomitant]
     Active Substance: METOLAZONE
  13. NAPROXEN. [Concomitant]
     Active Substance: NAPROXEN
  14. BENADRYL [Concomitant]
     Active Substance: DIPHENHYDRAMINE HYDROCHLORIDE
  15. DIPHENOXYLATE HYDROCHLORIDE [Concomitant]
     Active Substance: DIPHENOXYLATE HYDROCHLORIDE
  16. AFINITOR [Concomitant]
     Active Substance: EVEROLIMUS
  17. PREDNISONE. [Concomitant]
     Active Substance: PREDNISONE

REACTIONS (2)
  - Oedema peripheral [Not Recovered/Not Resolved]
  - Surgery [Unknown]
